FAERS Safety Report 10204273 (Version 1)
Quarter: 2014Q2

REPORT INFORMATION
  Report Type: Spontaneous
  Country: US (occurrence: US)
  Receive Date: 20140529
  Receipt Date: 20140529
  Transmission Date: 20141212
  Serious: Yes (Other)
  Sender: FDA-Public Use
  Company Number: US-ACTAVIS-2014-11524

PATIENT
  Age: 72 Year
  Sex: Female

DRUGS (1)
  1. VALPROIC ACID (UNKNOWN) [Suspect]
     Indication: DEPRESSION
     Dosage: 1000 MG, DAILY
     Route: 065

REACTIONS (1)
  - Parkinson^s disease [Recovered/Resolved]
